FAERS Safety Report 15330526 (Version 4)
Quarter: 2018Q4

REPORT INFORMATION
  Report Type: Report from Study
  Country: US (occurrence: US)
  Receive Date: 20180829
  Receipt Date: 20181001
  Transmission Date: 20190204
  Serious: Yes (Hospitalization, Other)
  Sender: FDA-Public Use
  Company Number: US-GILEAD-2018-0359373

PATIENT
  Age: 60 Year
  Sex: Female

DRUGS (10)
  1. ADCIRCA [Suspect]
     Active Substance: TADALAFIL
     Indication: PRODUCT USED FOR UNKNOWN INDICATION
     Dosage: 40 MG, UNK
     Route: 048
  2. METFORMIN [Concomitant]
     Active Substance: METFORMIN HYDROCHLORIDE
  3. AMBRISENTAN [Suspect]
     Active Substance: AMBRISENTAN
     Indication: PULMONARY HYPERTENSION
     Dosage: 5 MG, QD
     Route: 048
     Dates: start: 20180706
  4. ALBUTEROL                          /00139501/ [Concomitant]
     Active Substance: ALBUTEROL
  5. PRAVASTATIN. [Concomitant]
     Active Substance: PRAVASTATIN
  6. AMBRISENTAN [Suspect]
     Active Substance: AMBRISENTAN
     Indication: SCLERODERMA
  7. REMODULIN [Suspect]
     Active Substance: TREPROSTINIL
     Indication: PULMONARY HYPERTENSION
     Dosage: 12.3 NG, Q1SECOND
     Route: 065
  8. ALDACTONE [Concomitant]
     Active Substance: SPIRONOLACTONE
  9. NORVASC [Concomitant]
     Active Substance: AMLODIPINE BESYLATE
  10. WARFARIN [Concomitant]
     Active Substance: WARFARIN

REACTIONS (7)
  - Pulmonary arterial hypertension [Unknown]
  - Drug-induced liver injury [Not Recovered/Not Resolved]
  - Epistaxis [Recovered/Resolved]
  - Hepatic failure [Unknown]
  - Primary biliary cholangitis [Unknown]
  - Jaundice [Recovered/Resolved]
  - Fatigue [Recovered/Resolved]

NARRATIVE: CASE EVENT DATE: 20180820
